FAERS Safety Report 4612815-5 (Version None)
Quarter: 2005Q1

REPORT INFORMATION
  Report Type: 
  Country: None (occurrence: None)
  Receive Date: 20050318
  Receipt Date: 20050315
  Transmission Date: 20050727
  Serious: Yes (Life-Threatening, Hospitalization)
  Sender: FDA-Public Use
  Company Number: PHRM2005FR01078

PATIENT
  Age: 25 Year
  Sex: Male

DRUGS (2)
  1. DEPAKENE [Concomitant]
     Indication: PARTIAL SEIZURES
     Route: 048
  2. TRILEPTAL [Suspect]
     Indication: PARTIAL SEIZURES
     Dosage: 300 MG, BID
     Route: 048

REACTIONS (5)
  - BONE MARROW DEPRESSION [None]
  - DERMATITIS BULLOUS [None]
  - INTUBATION [None]
  - LIFE SUPPORT [None]
  - TOXIC EPIDERMAL NECROLYSIS [None]
